FAERS Safety Report 5002424-0 (Version None)
Quarter: 2006Q2

REPORT INFORMATION
  Report Type: 
  Country: None (occurrence: None)
  Receive Date: 20060510
  Receipt Date: 20060428
  Transmission Date: 20061013
  Serious: Yes (Other)
  Sender: FDA-Public Use
  Company Number: 2006057978

PATIENT
  Age: 51 Year
  Sex: Female
  Weight: 62.5964 kg

DRUGS (5)
  1. COLESTIPOL HCL [Suspect]
     Indication: BLOOD CHOLESTEROL INCREASED
     Dosage: 1 GRAM (1 GRAM, 1 IN 1 D), ORAL
     Route: 048
     Dates: start: 20060401, end: 20060401
  2. SYNTHROID [Concomitant]
  3. ESTROGENS [Concomitant]
  4. PROGESTERONE [Concomitant]
  5. VITAMINS [Concomitant]

REACTIONS (4)
  - DYSPHAGIA [None]
  - ERUCTATION [None]
  - HYPERSENSITIVITY [None]
  - THROAT TIGHTNESS [None]
